FAERS Safety Report 6544367-7 (Version None)
Quarter: 2010Q1

REPORT INFORMATION
  Report Type: 
  Country: None (occurrence: None)
  Receive Date: 20100120
  Receipt Date: 20100120
  Transmission Date: 20100710
  Serious: Yes (Death)
  Sender: FDA-Public Use
  Company Number: None

PATIENT
  Age: 82 Year
  Sex: Male
  Weight: 78.0187 kg

DRUGS (2)
  1. PIROXICAM [Suspect]
     Indication: ARTHRALGIA
     Dosage: 1 CAPSULE ORALLY EVERY DAY PO
     Route: 048
     Dates: start: 20080327, end: 20080422
  2. VITAMINS [Concomitant]

REACTIONS (2)
  - HAEMORRHAGIC STROKE [None]
  - SUDDEN DEATH [None]
